FAERS Safety Report 13025118 (Version 1)
Quarter: 2016Q4

REPORT INFORMATION
  Report Type: Report from Study
  Country: IN (occurrence: IN)
  Receive Date: 20161213
  Receipt Date: 20161213
  Transmission Date: 20170207
  Serious: Yes (Death)
  Sender: FDA-Public Use
  Company Number: IN-ROCHE-1866941

PATIENT

DRUGS (2)
  1. ALTEPLASE [Suspect]
     Active Substance: ALTEPLASE
     Indication: ISCHAEMIC STROKE
     Dosage: 0.9 MG/KG WITH 10% AS A BOLUS AND THE REST AS AN INFUSION OVER 1 H
     Route: 040
  2. ALTEPLASE [Suspect]
     Active Substance: ALTEPLASE
     Dosage: 0.9 MG/KG WITH 10% AS A BOLUS AND THE REST AS AN INFUSION OVER 1 H
     Route: 042

REACTIONS (1)
  - Pulmonary oedema [Fatal]
